FAERS Safety Report 9170123 (Version 1)
Quarter: 2013Q1

REPORT INFORMATION
  Report Type: Spontaneous
  Country: US (occurrence: None)
  Receive Date: 20130314
  Receipt Date: 20130314
  Transmission Date: 20140127
  Serious: Yes (Other)
  Sender: FDA-Public Use
  Company Number: None

PATIENT
  Sex: Female
  Weight: 54.43 kg

DRUGS (1)
  1. ALLEGRA D 12 HR ALLERGY + CONGESTION SANOFI-AVENTIS GROUP [Suspect]
     Indication: COUGH
     Dosage: 1 PILL 12 HR - 2/DAY- PO
     Route: 048
     Dates: start: 20130222, end: 20130308

REACTIONS (13)
  - Dizziness [None]
  - Mydriasis [None]
  - Disorientation [None]
  - Head injury [None]
  - Headache [None]
  - Nausea [None]
  - Dysstasia [None]
  - Gait disturbance [None]
  - Loss of consciousness [None]
  - Pallor [None]
  - Hypotension [None]
  - Dehydration [None]
  - Skin discolouration [None]
